FAERS Safety Report 4297393-5 (Version None)
Quarter: 2004Q1

REPORT INFORMATION
  Report Type: 
  Country: None (occurrence: None)
  Receive Date: 20040213
  Receipt Date: 20040205
  Transmission Date: 20041129
  Serious: Yes (Other)
  Sender: FDA-Public Use
  Company Number: 2004-02-0341

PATIENT
  Sex: Female

DRUGS (1)
  1. CLARITIN [Suspect]
     Dosage: ORAL
     Route: 048

REACTIONS (3)
  - DYSURIA [None]
  - MUSCLE CRAMP [None]
  - RENAL FAILURE [None]
